FAERS Safety Report 16087982 (Version 1)
Quarter: 2019Q1

REPORT INFORMATION
  Report Type: Spontaneous
  Country: US (occurrence: US)
  Receive Date: 20190319
  Receipt Date: 20190319
  Transmission Date: 20190418
  Serious: No
  Sender: FDA-Public Use
  Company Number: US-IPSEN BIOPHARMACEUTICALS, INC.-2019-03988

PATIENT
  Age: 35 Year

DRUGS (2)
  1. BOTOX [Suspect]
     Active Substance: ONABOTULINUMTOXINA
     Indication: PRODUCT USED FOR UNKNOWN INDICATION
     Dosage: NOT REPORTED
     Dates: start: 201610
  2. DYSPORT [Suspect]
     Active Substance: ABOBOTULINUMTOXINA
     Indication: PRODUCT USED FOR UNKNOWN INDICATION
     Route: 030
     Dates: start: 201604

REACTIONS (17)
  - Photophobia [Unknown]
  - Fatigue [Unknown]
  - Influenza like illness [Unknown]
  - Paraesthesia [Unknown]
  - Nausea [Recovered/Resolved]
  - Nausea [Unknown]
  - Panic attack [Unknown]
  - Vertigo [Recovered/Resolved]
  - Tooth fracture [Unknown]
  - Decreased appetite [Unknown]
  - Eye movement disorder [Unknown]
  - Vertigo [Unknown]
  - Anxiety [Unknown]
  - Hyperacusis [Unknown]
  - Vertigo [Recovered/Resolved]
  - Bruxism [Unknown]
  - Nervous system disorder [Unknown]

NARRATIVE: CASE EVENT DATE: 201604
